FAERS Safety Report 21406683 (Version 1)
Quarter: 2022Q4

REPORT INFORMATION
  Report Type: Spontaneous
  Country: PL (occurrence: PL)
  Receive Date: 20221004
  Receipt Date: 20221004
  Transmission Date: 20230113
  Serious: Yes (Other)
  Sender: FDA-Public Use
  Company Number: PL-NOVARTISPH-NVSC2022PL220830

PATIENT
  Age: 81 Year
  Sex: Female

DRUGS (3)
  1. KISQALI [Suspect]
     Active Substance: RIBOCICLIB
     Indication: Breast cancer metastatic
     Dosage: 600 MG (FOR 21 DAYS / SEVEN DAY BREAK)
     Route: 048
     Dates: start: 20201007
  2. KISQALI [Suspect]
     Active Substance: RIBOCICLIB
     Dosage: 400 MG, QD (FOR 21 DAYS)
     Route: 065
  3. LETROZOLE [Concomitant]
     Active Substance: LETROZOLE
     Indication: Product used for unknown indication
     Dosage: 2.5 MG, QD
     Route: 048

REACTIONS (17)
  - Neutropenia [Unknown]
  - Renal impairment [Unknown]
  - Choking [Unknown]
  - Coronavirus infection [Unknown]
  - Depressed mood [Unknown]
  - Feeling abnormal [Unknown]
  - Gastritis [Recovering/Resolving]
  - Chest pain [Unknown]
  - Sensation of foreign body [Unknown]
  - Dysphagia [Unknown]
  - Asthenia [Unknown]
  - Decreased appetite [Unknown]
  - Nausea [Unknown]
  - Blood bilirubin increased [Unknown]
  - Aspartate aminotransferase increased [Unknown]
  - Alanine aminotransferase increased [Unknown]
  - Weight decreased [Unknown]

NARRATIVE: CASE EVENT DATE: 20201127
